FAERS Safety Report 17468944 (Version 2)
Quarter: 2022Q1

REPORT INFORMATION
  Report Type: Report from Study
  Country: US (occurrence: US)
  Receive Date: 20200227
  Receipt Date: 20220301
  Transmission Date: 20220423
  Serious: No
  Sender: FDA-Public Use
  Company Number: US-AEGERION PHARMACEUTICAL, INC-AEGR004507

PATIENT
  Sex: Female

DRUGS (12)
  1. METRELEPTIN [Suspect]
     Active Substance: METRELEPTIN
     Indication: Partial lipodystrophy
     Dosage: 5 MG, QD
     Dates: start: 20140515
  2. METRELEPTIN [Suspect]
     Active Substance: METRELEPTIN
     Dosage: UNK
     Dates: start: 20190423
  3. METRELEPTIN [Suspect]
     Active Substance: METRELEPTIN
     Dosage: 5 MG, QD
  4. INSULIN NPH                        /01223208/ [Concomitant]
     Indication: Diabetes mellitus
     Dosage: 20 UNITS, BID
     Dates: start: 201906
  5. INSULIN REGULAR                    /01223201/ [Concomitant]
     Indication: Diabetes mellitus
     Dosage: 10 UNITS, BID
     Dates: start: 201906
  6. METFORMIN [Concomitant]
     Active Substance: METFORMIN HYDROCHLORIDE
     Indication: Diabetes mellitus
     Dosage: 1000 MG, BID
     Dates: start: 2009
  7. PRAVASTATIN [Concomitant]
     Active Substance: PRAVASTATIN
     Indication: Hypertriglyceridaemia
     Dosage: 20 MG, QD
     Dates: start: 2013
  8. FENOFIBRATE [Concomitant]
     Active Substance: FENOFIBRATE
     Indication: Hypertriglyceridaemia
     Dosage: 160 MG, QD
     Dates: start: 2011
  9. LOVAZA [Concomitant]
     Active Substance: OMEGA-3-ACID ETHYL ESTERS
     Indication: Hypertriglyceridaemia
     Dosage: 2 G, BID
     Dates: start: 20161004
  10. BUPROPION [Concomitant]
     Active Substance: BUPROPION
     Indication: Depression
     Dosage: 100 MG, QD
     Dates: start: 201609
  11. FLUOXETINE HYDROCHLORIDE [Concomitant]
     Active Substance: FLUOXETINE HYDROCHLORIDE
     Indication: Depression
     Dosage: 30 MG, QD
     Dates: start: 201606
  12. LOSARTAN [Concomitant]
     Active Substance: LOSARTAN
     Indication: Hypertension
     Dosage: 25 MG, QD
     Dates: start: 201411

REACTIONS (7)
  - Hyperphagia [Unknown]
  - Blood triglycerides increased [Unknown]
  - Bronchitis [Unknown]
  - Vomiting [Unknown]
  - Upper respiratory tract infection [Unknown]
  - Hypoglycaemia [Unknown]
  - Drug ineffective [Unknown]

NARRATIVE: CASE EVENT DATE: 20190101
